FAERS Safety Report 20895704 (Version 1)
Quarter: 2022Q2

REPORT INFORMATION
  Report Type: Spontaneous
  Country: US (occurrence: None)
  Receive Date: 20220529
  Receipt Date: 20220529
  Transmission Date: 20220721
  Serious: No
  Sender: FDA-Public Use
  Company Number: None

PATIENT
  Age: 60 Year
  Sex: Female
  Weight: 74.25 kg

DRUGS (19)
  1. TUKYSA [Suspect]
     Active Substance: TUCATINIB
     Indication: Breast cancer stage IV
  2. XELODA [Suspect]
     Active Substance: CAPECITABINE
  3. XELODA [Concomitant]
     Active Substance: CAPECITABINE
  4. TUKYSA [Concomitant]
     Active Substance: TUCATINIB
  5. HERCEPTIN [Concomitant]
     Active Substance: TRASTUZUMAB
  6. PREDNISONE [Concomitant]
     Active Substance: PREDNISONE
  7. CLARITIN [Concomitant]
     Active Substance: LORATADINE
  8. HYDROXYZINE [Concomitant]
     Active Substance: HYDROXYZINE HYDROCHLORIDE
  9. ATIVAN [Concomitant]
     Active Substance: LORAZEPAM
  10. Thyroid Med [Concomitant]
  11. Enoxparin [Concomitant]
  12. CLARITIN [Concomitant]
     Active Substance: LORATADINE
  13. VITAMINS [Concomitant]
     Active Substance: VITAMINS
  14. BROMELAINS [Concomitant]
     Active Substance: BROMELAINS
  15. Vir C [Concomitant]
  16. MAGNESIUM [Concomitant]
     Active Substance: MAGNESIUM
  17. VITAMIN E [Concomitant]
     Active Substance: .ALPHA.-TOCOPHEROL
  18. Vit [Concomitant]
  19. LYSINE [Concomitant]
     Active Substance: LYSINE

REACTIONS (2)
  - Pruritus [None]
  - Pruritus [None]
